FAERS Safety Report 5722899-9 (Version None)
Quarter: 2008Q2

REPORT INFORMATION
  Report Type: 
  Country: None (occurrence: None)
  Receive Date: 20080425
  Receipt Date: 20080410
  Transmission Date: 20081010
  Serious: Yes (Hospitalization, Other)
  Sender: FDA-Public Use
  Company Number: 062-21880-07110436

PATIENT
  Age: 69 Year
  Sex: Male
  Weight: 110 kg

DRUGS (11)
  1. REVLIMID [Suspect]
     Indication: MULTIPLE MYELOMA
     Dosage: 25 MG, 1 IN 1 D, ORAL;   15 MG, 1 IN 1 D, ORAL
     Dates: start: 20070924, end: 20071020
  2. REVLIMID [Suspect]
     Indication: MULTIPLE MYELOMA
     Dosage: 25 MG, 1 IN 1 D, ORAL;   15 MG, 1 IN 1 D, ORAL
     Dates: start: 20071030, end: 20071213
  3. TYROXIN (LEVOTHYROXINE SODIUM) [Concomitant]
  4. DEXAMETHASONE [Concomitant]
  5. ENOXAPARIN SODIUM [Concomitant]
  6. LEVOFLOXACIN [Concomitant]
  7. FUROSEMIDE [Concomitant]
  8. METOPROLOL TARTRATE [Concomitant]
  9. LACTULOSE [Concomitant]
  10. AMLOBETA (AMLODIPINE MESILATE) [Concomitant]
  11. RAMIPRIL [Concomitant]

REACTIONS (13)
  - ASTHENIA [None]
  - HYPERHIDROSIS [None]
  - HYPERTENSION [None]
  - INCORRECT DRUG ADMINISTRATION DURATION [None]
  - LEUKOPENIA [None]
  - MUCOSAL INFLAMMATION [None]
  - MUSCLE SPASMS [None]
  - NEUTROPENIA [None]
  - OEDEMA PERIPHERAL [None]
  - ORAL HERPES [None]
  - POLYNEUROPATHY [None]
  - THROMBOCYTOPENIA [None]
  - TRISMUS [None]
